FAERS Safety Report 13966787 (Version 3)
Quarter: 2017Q4

REPORT INFORMATION
  Report Type: Report from Study
  Country: JP (occurrence: JP)
  Receive Date: 20170914
  Receipt Date: 20171010
  Transmission Date: 20180320
  Serious: Yes (Death, Life-Threatening, Other)
  Sender: FDA-Public Use
  Company Number: JP-ALXN-A201704166AA

PATIENT
  Age: 30 Year
  Sex: Female
  Weight: 53 kg

DRUGS (9)
  1. SOLIRIS [Suspect]
     Active Substance: ECULIZUMAB
     Dosage: 900 MG, Q3W
     Route: 042
     Dates: start: 20160819, end: 20160909
  2. WARFARIN [Concomitant]
     Active Substance: WARFARIN
     Indication: PAROXYSMAL NOCTURNAL HAEMOGLOBINURIA
     Dosage: 3.5 MG, DAILY
     Route: 065
     Dates: start: 20160122, end: 20160326
  3. SOLIRIS [Suspect]
     Active Substance: ECULIZUMAB
     Indication: PAROXYSMAL NOCTURNAL HAEMOGLOBINURIA
     Dosage: 600 MG, Q4D
     Route: 042
     Dates: start: 20160129, end: 20160202
  4. SOLIRIS [Suspect]
     Active Substance: ECULIZUMAB
     Dosage: 600 MG, QW
     Route: 042
     Dates: start: 20160202, end: 20160217
  5. SOLIRIS [Suspect]
     Active Substance: ECULIZUMAB
     Dosage: 900 MG, Q2W
     Route: 042
     Dates: start: 20160909
  6. SOLIRIS [Suspect]
     Active Substance: ECULIZUMAB
     Dosage: 900 MG, Q2W
     Route: 042
     Dates: start: 20160224, end: 20160422
  7. HEPARIN SODIUM. [Concomitant]
     Active Substance: HEPARIN SODIUM
     Indication: PAROXYSMAL NOCTURNAL HAEMOGLOBINURIA
     Dosage: 10000 IU, DAILY
     Route: 065
     Dates: start: 20161230
  8. SOLIRIS [Suspect]
     Active Substance: ECULIZUMAB
     Dosage: 900 MG, Q3W
     Dates: start: 20160422, end: 20160512
  9. SOLIRIS [Suspect]
     Active Substance: ECULIZUMAB
     Dosage: 900 MG, Q2W
     Route: 042
     Dates: start: 20160512, end: 20160819

REACTIONS (4)
  - Cerebral haemorrhage [Not Recovered/Not Resolved]
  - Exposure during pregnancy [Unknown]
  - Inappropriate schedule of drug administration [Unknown]
  - Cerebral venous thrombosis [Fatal]

NARRATIVE: CASE EVENT DATE: 20160422
